FAERS Safety Report 4549987-7 (Version None)
Quarter: 2005Q1

REPORT INFORMATION
  Report Type: 
  Country: None (occurrence: None)
  Receive Date: 20050112
  Receipt Date: 20041231
  Transmission Date: 20050727
  Serious: Yes (Hospitalization)
  Sender: FDA-Public Use
  Company Number: FR-BRISTOL-MYERS SQUIBB COMPANY-12813051

PATIENT
  Age: 78 Year
  Sex: Female

DRUGS (10)
  1. GLUCOPHAGE [Suspect]
     Indication: DIABETES MELLITUS NON-INSULIN-DEPENDENT
     Route: 048
     Dates: start: 20000615, end: 20040912
  2. ATACAND [Suspect]
     Route: 048
     Dates: start: 20040615, end: 20040912
  3. LASILIX [Suspect]
     Dosage: 40 MG TABLET, 2.5 DOSE FORMS DAILY THRU 12-SEP-2004, REINTRODUCED AT 40 MG DAILY ON 14-SEP-2004
     Route: 048
     Dates: start: 20030615
  4. ALDACTONE [Suspect]
     Route: 048
     Dates: start: 20030615, end: 20040912
  5. TAHOR [Suspect]
     Route: 048
     Dates: start: 20030615
  6. AMARYL [Suspect]
     Route: 048
  7. SOPROL [Concomitant]
     Dosage: TOOK 1/2 OF A 10 MG TABLET DAILY
     Route: 048
  8. ZYLORIC [Concomitant]
     Route: 048
     Dates: start: 20030615
  9. DAFLON [Concomitant]
     Route: 048
     Dates: start: 20010615, end: 20040912
  10. PIASCLEDINE [Concomitant]
     Dates: start: 20010615, end: 20040912

REACTIONS (6)
  - DEHYDRATION [None]
  - DIARRHOEA [None]
  - HYPOGLYCAEMIA [None]
  - HYPOTENSION [None]
  - LOSS OF CONSCIOUSNESS [None]
  - RENAL FAILURE ACUTE [None]
